FAERS Safety Report 20584639 (Version 1)
Quarter: 2022Q1

REPORT INFORMATION
  Report Type: Spontaneous
  Country: FR (occurrence: FR)
  Receive Date: 20220311
  Receipt Date: 20220311
  Transmission Date: 20220423
  Serious: Yes (Congenital Anomaly)
  Sender: FDA-Public Use
  Company Number: None

PATIENT
  Sex: Male

DRUGS (8)
  1. PANTOPRAZOLE [Suspect]
     Active Substance: PANTOPRAZOLE
     Indication: Product used for unknown indication
     Dosage: UNIT DOSE : 20 MG
     Route: 064
     Dates: start: 20191202, end: 202001
  2. ATOVAQUONE [Suspect]
     Active Substance: ATOVAQUONE
     Indication: Pneumocystis jirovecii pneumonia
     Dosage: STRENGTH : 750 MG/5 ML , UNIT DOSE : 1500 MG
     Route: 064
     Dates: start: 20191202, end: 202001
  3. TRUVADA [Suspect]
     Active Substance: EMTRICITABINE\TENOFOVIR DISOPROXIL FUMARATE
     Indication: HIV infection
     Dosage: STRENGTH : 200MG/245MG , UNIT DOSE : 1 DF
     Route: 064
     Dates: start: 20191202, end: 20200803
  4. ETHAMBUTOL HYDROCHLORIDE [Suspect]
     Active Substance: ETHAMBUTOL HYDROCHLORIDE
     Indication: Mycobacterium avium complex infection
     Dosage: UNIT DOSE : 750 MG
     Route: 064
     Dates: start: 20191202, end: 202002
  5. ISENTRESS [Suspect]
     Active Substance: RALTEGRAVIR POTASSIUM
     Indication: HIV infection
     Dosage: UNIT DOSE : 800 MG
     Route: 064
     Dates: start: 20191202, end: 20200803
  6. CLARITHROMYCIN [Suspect]
     Active Substance: CLARITHROMYCIN
     Indication: Mycobacterium avium complex infection
     Dosage: UNIT DOSE : 500 MG
     Route: 064
     Dates: start: 20191202, end: 202002
  7. FLUCONAZOLE [Suspect]
     Active Substance: FLUCONAZOLE
     Indication: Neurocryptococcosis
     Dosage: UNIT DOSE : 600 MG
     Route: 064
     Dates: start: 20191202, end: 202001
  8. RAMIPRIL [Suspect]
     Active Substance: RAMIPRIL
     Indication: Product used for unknown indication
     Dosage: UNIT DOSE : 4 MG
     Route: 064
     Dates: start: 20191202, end: 202001

REACTIONS (2)
  - Congenital foot malformation [Not Recovered/Not Resolved]
  - Phalangeal hypoplasia [Not Recovered/Not Resolved]

NARRATIVE: CASE EVENT DATE: 20200323
